FAERS Safety Report 7240903-6 (Version None)
Quarter: 2011Q1

REPORT INFORMATION
  Report Type: 
  Country: None (occurrence: None)
  Receive Date: 20110124
  Receipt Date: 20110111
  Transmission Date: 20110831
  Serious: Yes (Other)
  Sender: FDA-Public Use
  Company Number: PHHY2011DE02456

PATIENT
  Sex: Female

DRUGS (1)
  1. ACLASTA [Suspect]
     Dosage: 5 MG YEARLY
     Route: 042
     Dates: start: 20090730

REACTIONS (2)
  - TOOTH LOSS [None]
  - OSTEONECROSIS OF JAW [None]
